FAERS Safety Report 4939369-8 (Version None)
Quarter: 2006Q1

REPORT INFORMATION
  Report Type: 
  Country: None (occurrence: None)
  Receive Date: 20060310
  Receipt Date: 20051223
  Transmission Date: 20060701
  Serious: Yes (Other)
  Sender: FDA-Public Use
  Company Number: 2005UW19416

PATIENT
  Age: 14 Year
  Sex: Female

DRUGS (2)
  1. SEROQUEL [Suspect]
     Dosage: 200 MG IN THE AM BEFORE SCHOOL AND 300 MG IN THE EVENING
     Route: 048
     Dates: start: 20050101
  2. ADDERALL 10 [Suspect]

REACTIONS (7)
  - AGITATION [None]
  - ANGER [None]
  - DEPRESSED LEVEL OF CONSCIOUSNESS [None]
  - DEPRESSED MOOD [None]
  - DEPRESSION [None]
  - INTENTIONAL SELF-INJURY [None]
  - SOMNOLENCE [None]
